FAERS Safety Report 21242507 (Version 1)
Quarter: 2022Q3

REPORT INFORMATION
  Report Type: Spontaneous
  Country: US (occurrence: None)
  Receive Date: 20220822
  Receipt Date: 20220822
  Transmission Date: 20221027
  Serious: Yes (Disabling)
  Sender: FDA-Public Use
  Company Number: None

PATIENT
  Age: 20 Year
  Sex: Male
  Weight: 87.75 kg

DRUGS (1)
  1. NUVIGIL [Suspect]
     Active Substance: ARMODAFINIL
     Indication: Hypersomnia
     Dates: start: 20200603, end: 20210301

REACTIONS (4)
  - Small fibre neuropathy [None]
  - Muscular weakness [None]
  - Gait disturbance [None]
  - Myalgia [None]

NARRATIVE: CASE EVENT DATE: 20200603
